FAERS Safety Report 9526628 (Version 2)
Quarter: 2013Q3

REPORT INFORMATION
  Report Type: Spontaneous
  Country: DK (occurrence: DK)
  Receive Date: 20130916
  Receipt Date: 20130916
  Transmission Date: 20140515
  Serious: Yes (Other)
  Sender: FDA-Public Use
  Company Number: DK-ARROW-2012-11875

PATIENT
  Sex: Male

DRUGS (2)
  1. AMLODIPINE BESYLATE (UNKNOWN) [Suspect]
     Indication: HYPERTENSION
     Dosage: 10 MG, DAILY
     Route: 048
     Dates: start: 2002, end: 201203
  2. METFORMIN [Concomitant]
     Indication: DIABETES MELLITUS
     Dosage: 1 G, DAILY
     Route: 048

REACTIONS (2)
  - Gingival hyperplasia [Not Recovered/Not Resolved]
  - Loose tooth [Unknown]
